FAERS Safety Report 7683379-7 (Version None)
Quarter: 2011Q3

REPORT INFORMATION
  Report Type: 
  Country: None (occurrence: None)
  Receive Date: 20110815
  Receipt Date: 20110804
  Transmission Date: 20111222
  Serious: Yes (Other)
  Sender: FDA-Public Use
  Company Number: US-BAYER-201039771NA

PATIENT
  Age: 29 Year
  Sex: Female
  Weight: 72.109 kg

DRUGS (14)
  1. YAZ [Suspect]
     Indication: MENSTRUATION IRREGULAR
     Dosage: UNK UNK, UNK
     Route: 048
     Dates: start: 20080901, end: 20090901
  2. MUCINEX DM [Concomitant]
     Route: 048
  3. CALCIUM PLUS [ASCORBIC ACID,CALCIUM LACTATE GLUCONATE] [Concomitant]
     Dosage: UNK UNK, QD
     Route: 048
     Dates: start: 20080101
  4. LISINOPRIL [Concomitant]
     Indication: RENAL IMPAIRMENT
     Dosage: 10 MG, QD
     Route: 048
     Dates: start: 20081001
  5. YASMIN [Suspect]
     Indication: MENSTRUATION IRREGULAR
     Dosage: UNK
     Dates: start: 20050201, end: 20051001
  6. ASCORBIC ACID [Concomitant]
     Dosage: 250 MG, QD
     Route: 048
  7. MULTI-VITAMIN [Concomitant]
     Dosage: UNK UNK, QD
     Route: 048
     Dates: start: 20080101
  8. HUMALOG [Concomitant]
     Indication: TYPE 1 DIABETES MELLITUS
     Dosage: 12 U, QD
     Route: 058
     Dates: start: 20081001
  9. CINNAMON [Concomitant]
     Dosage: UNK UNK, OM
     Route: 048
  10. LANTUS [Concomitant]
     Indication: TYPE 1 DIABETES MELLITUS
     Dosage: 12 U, TID
     Route: 058
     Dates: start: 20070901, end: 20081201
  11. CLARITIN-D 24 HOUR [Concomitant]
     Dosage: UNK UNK, QD
     Route: 048
     Dates: start: 19900101
  12. VITAMIN D [Concomitant]
     Dosage: UNK UNK, QD
     Route: 048
     Dates: start: 20080101
  13. PHENERGAN HCL [Concomitant]
  14. LISINOPRIL [Concomitant]
     Indication: HYPERTENSION

REACTIONS (7)
  - PAIN [None]
  - GALLBLADDER DISORDER [None]
  - CHOLELITHIASIS [None]
  - POST CHOLECYSTECTOMY SYNDROME [None]
  - ABDOMINAL PAIN [None]
  - GASTROINTESTINAL DISORDER [None]
  - CHOLECYSTITIS CHRONIC [None]
